FAERS Safety Report 6389593-5 (Version None)
Quarter: 2009Q4

REPORT INFORMATION
  Report Type: 
  Country: None (occurrence: None)
  Receive Date: 20091006
  Receipt Date: 20070711
  Transmission Date: 20100525
  Serious: Yes (Other)
  Sender: FDA-Public Use
  Company Number: US-ASTRAZENECA-2006UW11511

PATIENT
  Age: 47 Year
  Sex: Female
  Weight: 68 kg

DRUGS (15)
  1. SEROQUEL [Suspect]
     Indication: BIPOLAR DISORDER
     Dosage: 25-200 MG
     Route: 048
     Dates: start: 20021101
  2. SEROQUEL [Suspect]
     Indication: DEPRESSION
     Dosage: 25-200 MG
     Route: 048
     Dates: start: 20021101
  3. SEROQUEL [Suspect]
     Route: 048
     Dates: end: 20050101
  4. SEROQUEL [Suspect]
     Route: 048
     Dates: end: 20050101
  5. ZYPREXA [Suspect]
     Dates: end: 20020101
  6. DEPAKOTE [Suspect]
     Dates: end: 20020101
  7. RISPERDAL [Concomitant]
  8. PROZAC [Concomitant]
     Indication: DEPRESSION
     Dates: start: 20021219
  9. KLONOPIN [Concomitant]
     Dates: start: 20021219
  10. SERTRALINE HCL [Concomitant]
     Dosage: 100 MG
     Dates: start: 20070211
  11. NORVASC [Concomitant]
     Indication: HYPERTENSION
     Dates: start: 20050524
  12. ADVAIR DISKUS 100/50 [Concomitant]
     Indication: ASTHMA
     Dosage: 100/50 1 PUFF TWO TIMES A DAY, 100/50 3 PUFFS AT NIGHT
     Dates: start: 20050524
  13. ALBUTEROL [Concomitant]
     Indication: ASTHMA
     Dosage: 2 PUFFS FOUR TIMES A DAY AS REQUIRED
     Dates: start: 20050524
  14. EFFEXOR XR [Concomitant]
     Indication: BIPOLAR DISORDER
     Dates: start: 20050524
  15. CLONAZEPAM [Concomitant]
     Dosage: 2 MG
     Dates: start: 20061106

REACTIONS (7)
  - BIPOLAR DISORDER [None]
  - HEPATITIS [None]
  - HEPATITIS A [None]
  - HEPATITIS B [None]
  - HYPERGLYCAEMIA [None]
  - LIMB DISCOMFORT [None]
  - WEIGHT INCREASED [None]
